FAERS Safety Report 7381156-8 (Version None)
Quarter: 2011Q1

REPORT INFORMATION
  Report Type: 
  Country: None (occurrence: None)
  Receive Date: 20110301
  Receipt Date: 20100519
  Transmission Date: 20110831
  Serious: Yes (Disabling, Other)
  Sender: FDA-Public Use
  Company Number: ALA_00735_2010

PATIENT
  Sex: Male
  Weight: 95.2554 kg

DRUGS (3)
  1. ELAVIL [Concomitant]
  2. ZANTAC [Concomitant]
  3. REGLAN [Suspect]
     Indication: OESOPHAGEAL DISORDER
     Dosage: (DF ORAL)
     Route: 048
     Dates: start: 20030422, end: 20090512

REACTIONS (2)
  - DYSKINESIA [None]
  - EXTRAPYRAMIDAL DISORDER [None]
